FAERS Safety Report 18290792 (Version 1)
Quarter: 2020Q3

REPORT INFORMATION
  Report Type: Report from Study
  Country: CA (occurrence: CA)
  Receive Date: 20200921
  Receipt Date: 20200921
  Transmission Date: 20201103
  Serious: Yes (Other)
  Sender: FDA-Public Use
  Company Number: CA-JNJFOC-20200731450

PATIENT
  Sex: Male

DRUGS (2)
  1. REMICADE [Suspect]
     Active Substance: INFLIXIMAB
     Indication: CROHN^S DISEASE
     Route: 042
     Dates: start: 20130918
  2. REMICADE [Suspect]
     Active Substance: INFLIXIMAB
     Dosage: PATIENT LAST DOSE ON 21?JUL?2020,
     Route: 042

REACTIONS (2)
  - Penile cancer [Unknown]
  - Penile infection [Unknown]
